FAERS Safety Report 9155365 (Version 5)
Quarter: 2013Q2

REPORT INFORMATION
  Report Type: Report from Study
  Country: US (occurrence: US)
  Receive Date: 20130311
  Receipt Date: 20130613
  Transmission Date: 20140414
  Serious: Yes (Hospitalization)
  Sender: FDA-Public Use
  Company Number: US-ROCHE-1184681

PATIENT
  Sex: Female

DRUGS (3)
  1. PEGASYS [Suspect]
     Indication: HEPATITIS C
     Dosage: 10 WEEK
     Route: 065
     Dates: start: 20121128, end: 20130508
  2. RIBASPHERE [Suspect]
     Indication: HEPATITIS C
     Dosage: DAILY IN DIVIDED DOSES, 10 WEEKS
     Route: 048
     Dates: start: 20121128, end: 20130508
  3. CARAFATE [Concomitant]
     Route: 065

REACTIONS (27)
  - Myalgia [Unknown]
  - Muscle spasms [Unknown]
  - Angina pectoris [Unknown]
  - Chest pain [Unknown]
  - Stomatitis [Unknown]
  - Blood glucose abnormal [Unknown]
  - Alopecia [Unknown]
  - Nausea [Unknown]
  - Vomiting [Unknown]
  - Pruritus [Unknown]
  - Oral candidiasis [Unknown]
  - White blood cell count decreased [Unknown]
  - Bronchitis [Recovered/Resolved]
  - Nausea [Unknown]
  - Injection site bruising [Unknown]
  - Constipation [Unknown]
  - Vitamin D decreased [Unknown]
  - Sleep disorder [Unknown]
  - Wrong technique in drug usage process [Unknown]
  - Product quality issue [Unknown]
  - Diarrhoea [Unknown]
  - Abdominal pain upper [Unknown]
  - Migraine [Unknown]
  - Sleep disorder [Unknown]
  - Fibromyalgia [Unknown]
  - Blood potassium decreased [Unknown]
  - Vitamin D decreased [Unknown]
